FAERS Safety Report 21419494 (Version 1)
Quarter: 2022Q4

REPORT INFORMATION
  Report Type: Spontaneous
  Country: US (occurrence: US)
  Receive Date: 20221006
  Receipt Date: 20221006
  Transmission Date: 20230112
  Serious: No
  Sender: FDA-Public Use
  Company Number: US-BAUSCH-BL-2022-022845

PATIENT
  Sex: Female

DRUGS (3)
  1. ALTRENO [Suspect]
     Active Substance: TRETINOIN
     Indication: Acne
     Dosage: EVERY OTHER DAY
     Route: 061
  2. ALTRENO [Suspect]
     Active Substance: TRETINOIN
  3. TRETINOIN [Suspect]
     Active Substance: TRETINOIN
     Indication: Acne
     Route: 065

REACTIONS (1)
  - Skin exfoliation [Unknown]
